FAERS Safety Report 5650782-6 (Version None)
Quarter: 2008Q1

REPORT INFORMATION
  Report Type: 
  Country: None (occurrence: None)
  Receive Date: 20080305
  Receipt Date: 20080222
  Transmission Date: 20080703
  Serious: Yes (Hospitalization, Other)
  Sender: FDA-Public Use
  Company Number: DE-ROCHE-533612

PATIENT
  Age: 67 Year
  Sex: Female
  Weight: 61.1 kg

DRUGS (5)
  1. ROCEPHIN [Suspect]
     Indication: BORRELIA INFECTION
     Route: 042
     Dates: end: 20071124
  2. ROCEPHIN [Suspect]
     Dosage: INTERRUPTED FOR SEVEN YEARS.
     Route: 042
     Dates: start: 19870101, end: 20000101
  3. CEFTRIAXONE [Suspect]
     Indication: BORRELIA INFECTION
     Route: 065
     Dates: start: 20070101
  4. BISOPROLOL FUMARATE [Concomitant]
  5. KALINOR [Concomitant]
     Dosage: DRUG: KALINOR EFFERVESCENT

REACTIONS (5)
  - HAEMOGLOBIN DECREASED [None]
  - HYPERTENSION [None]
  - JARISCH-HERXHEIMER REACTION [None]
  - PLEURAL EFFUSION [None]
  - PULMONARY EMBOLISM [None]
